FAERS Safety Report 8930502 (Version 1)
Quarter: 2012Q4

REPORT INFORMATION
  Report Type: 
  Country: CA (occurrence: CA)
  Receive Date: 20121128
  Receipt Date: 20121128
  Transmission Date: 20130627
  Serious: Yes (Hospitalization)
  Sender: FDA-Public Use
  Company Number: CA-ASTRAZENECA-2012SE88450

PATIENT
  Sex: Female

DRUGS (2)
  1. CRESTOR [Suspect]
     Route: 048
  2. PRAVASTATIN [Suspect]
     Route: 048

REACTIONS (2)
  - Autoimmune disorder [Recovered/Resolved]
  - Hepatitis cholestatic [Recovered/Resolved]
